FAERS Safety Report 7518846-X (Version None)
Quarter: 2011Q2

REPORT INFORMATION
  Report Type: 
  Country: None (occurrence: None)
  Receive Date: 20110602
  Receipt Date: 20110531
  Transmission Date: 20111010
  Serious: No
  Sender: FDA-Public Use
  Company Number: US-PFIZER INC-2011118184

PATIENT
  Sex: Male
  Weight: 64.399 kg

DRUGS (7)
  1. ASPIRIN [Concomitant]
     Dosage: 81 MG, DAILY
     Route: 048
  2. LIPITOR [Suspect]
     Dosage: 20MG DAILY
     Dates: end: 20110501
  3. HYZAAR [Concomitant]
     Dosage: [HYDROCHLOROTHIAZIDE 25MG]/ [LOSARTAN POTASSIUM 100MG], DAILY
     Route: 048
  4. LIPITOR [Suspect]
     Indication: BLOOD CHOLESTEROL INCREASED
     Dosage: 20 MG, DAILY
     Route: 048
     Dates: end: 20110501
  5. HUMULIN R [Concomitant]
     Indication: DIABETES MELLITUS
     Dosage: 20 IU, DAILY
  6. LIPITOR [Suspect]
     Dosage: 40 MG, DAILY
     Route: 048
  7. HUMULIN N [Concomitant]
     Indication: DIABETES MELLITUS
     Dosage: 10 IU, DAILY

REACTIONS (4)
  - PAIN IN EXTREMITY [None]
  - AGITATION [None]
  - SCAB [None]
  - MUSCLE SPASMS [None]
